FAERS Safety Report 13836266 (Version 4)
Quarter: 2021Q2

REPORT INFORMATION
  Report Type: Report from Study
  Country: US (occurrence: US)
  Receive Date: 20170804
  Receipt Date: 20210414
  Transmission Date: 20210716
  Serious: Yes (Other)
  Sender: FDA-Public Use
  Company Number: US-SHIRE-US201717086

PATIENT
  Age: 35 Year
  Sex: Female
  Weight: 281.2 kg

DRUGS (39)
  1. ALBUTEROL SULFATE. [Concomitant]
     Active Substance: ALBUTEROL SULFATE
     Indication: ASTHMA
     Dosage: UNK DOSAGE FORM, PRN
     Route: 055
     Dates: start: 20151218
  2. TRAZODONE [Concomitant]
     Active Substance: TRAZODONE HYDROCHLORIDE
     Indication: INSOMNIA
     Dosage: 400 DOSAGE FORM, QD
     Route: 048
     Dates: start: 2016
  3. DULOXETINE. [Concomitant]
     Active Substance: DULOXETINE
     Indication: ANXIETY
     Dosage: 30 DOSAGE FORM, QD
     Route: 048
     Dates: start: 201704
  4. ACETAMINOPHEN AND CODEINE [Concomitant]
     Active Substance: ACETAMINOPHEN\CODEINE PHOSPHATE
     Indication: MUSCLE DISORDER
     Dosage: UNK MILLIGRAM,6HR
     Route: 048
     Dates: start: 20170517, end: 20170518
  5. FEXOFENADINE [Concomitant]
     Active Substance: FEXOFENADINE HYDROCHLORIDE
     Indication: SEASONAL ALLERGY
     Dosage: UNK MILLIGRAM, PRN
     Route: 048
     Dates: start: 2001
  6. LEVOFLOXACIN                       /01278903/ [Concomitant]
     Active Substance: LEVOFLOXACIN
     Indication: ASTHMA
     Dosage: UNK MILLIGRAM, QD
     Route: 048
     Dates: start: 20170425, end: 20170504
  7. CYCLOBENZAPRINE. [Concomitant]
     Active Substance: CYCLOBENZAPRINE
     Indication: MUSCLE DISORDER
     Dosage: UNK MILLIGRAM,8HR
     Route: 048
     Dates: start: 20170517, end: 20170518
  8. TIZANIDINE. [Concomitant]
     Active Substance: TIZANIDINE
     Indication: LIGAMENT SPRAIN
     Dosage: 2 MILLIGRAM
     Route: 048
  9. HUMAN IMMUNOGLOBULIN; HYALURONIDASE [Suspect]
     Active Substance: HUMAN IMMUNOGLOBULIN G\HYALURONIDASE RECOMBINANT HUMAN
     Dosage: 650 UNK
     Route: 058
     Dates: start: 20170616, end: 20170616
  10. DIPHENHYDRAMINE. [Concomitant]
     Active Substance: DIPHENHYDRAMINE
     Indication: INFUSION SITE REACTION
     Dosage: UNK MILLIGRAM, PRN
     Route: 048
     Dates: start: 20160304
  11. SUMATRIPTAN. [Concomitant]
     Active Substance: SUMATRIPTAN
     Indication: MIGRAINE WITHOUT AURA
     Dosage: UNK MILLIGRAM, PRN
     Route: 048
     Dates: start: 20161031
  12. ALPRAZOLAM. [Concomitant]
     Active Substance: ALPRAZOLAM
     Indication: ANXIETY DISORDER
     Dosage: UNK MILLIGRAM, PRN
     Route: 048
     Dates: start: 20210405
  13. DULERA [Concomitant]
     Active Substance: FORMOTEROL FUMARATE DIHYDRATE\MOMETASONE FUROATE
     Indication: ANXIETY
  14. OMEPRAZOLE. [Concomitant]
     Active Substance: OMEPRAZOLE
     Indication: EOSINOPHILIC OESOPHAGITIS
     Dosage: UNK MILLIGRAM, QD
     Route: 048
     Dates: start: 2015
  15. HUMAN IMMUNOGLOBULIN; HYALURONIDASE [Suspect]
     Active Substance: HUMAN IMMUNOGLOBULIN G\HYALURONIDASE RECOMBINANT HUMAN
     Dosage: 600?650 ML IG/ 30?32.5 ML RHUPH20, EVERY 3 WK
     Route: 058
     Dates: start: 20170303, end: 20170413
  16. HUMAN IMMUNOGLOBULIN; HYALURONIDASE [Suspect]
     Active Substance: HUMAN IMMUNOGLOBULIN G\HYALURONIDASE RECOMBINANT HUMAN
     Dosage: 650 DOSAGE FORM
     Dates: start: 20170413, end: 20170413
  17. HUMAN IMMUNOGLOBULIN; HYALURONIDASE [Suspect]
     Active Substance: HUMAN IMMUNOGLOBULIN G\HYALURONIDASE RECOMBINANT HUMAN
     Dosage: 650 UNK
     Route: 058
     Dates: start: 20170505, end: 20170505
  18. HUMAN IMMUNOGLOBULIN; HYALURONIDASE [Suspect]
     Active Substance: HUMAN IMMUNOGLOBULIN G\HYALURONIDASE RECOMBINANT HUMAN
     Dosage: 650 UNK
     Route: 058
     Dates: start: 20170526
  19. FORMOTEROL FUMARATE W/MOMETASONE FUROATE [Concomitant]
     Indication: ASTHMA
     Dosage: UNK MICROGRAM, BID
     Route: 055
     Dates: start: 2014
  20. GUAIFENESIN/PSEUDOEPHEDRINE [Concomitant]
     Active Substance: GUAIFENESIN\PSEUDOEPHEDRINE HYDROCHLORIDE
     Indication: ACUTE SINUSITIS
     Dosage: UNK DOSAGE FORM, PRN
     Route: 048
     Dates: start: 20151118
  21. PREDNISONE. [Concomitant]
     Active Substance: PREDNISONE
     Dosage: UNK
     Route: 048
     Dates: start: 20170425, end: 20170504
  22. ACETAMINOPHEN. [Concomitant]
     Active Substance: ACETAMINOPHEN
     Indication: HEADACHE
     Dosage: UNK MILLIGRAM, PRN
     Route: 048
     Dates: start: 20160304
  23. AMOXICILLIN/CLAVULANIC ACID [Concomitant]
     Active Substance: AMOXICILLIN\CLAVULANIC ACID
     Indication: ASTHMA
     Dosage: UNK MILLIGRAM, BID
     Route: 048
     Dates: start: 20170422, end: 20170425
  24. HUMAN IMMUNOGLOBULIN; HYALURONIDASE [Suspect]
     Active Substance: HUMAN IMMUNOGLOBULIN G\HYALURONIDASE RECOMBINANT HUMAN
     Dosage: 600 DOSAGE FORM
     Route: 058
     Dates: start: 20170303, end: 20170303
  25. TRAZODONE HYDROCHLORIDE. [Concomitant]
     Active Substance: TRAZODONE HYDROCHLORIDE
     Indication: INSOMNIA
     Dosage: UNK MILLIGRAM, PRN
     Route: 048
     Dates: start: 2007
  26. IPRATROPIUM BROMIDE. [Concomitant]
     Active Substance: IPRATROPIUM BROMIDE
     Indication: BRONCHITIS
     Dosage: UNK DOSAGE FORM, PRN
     Route: 055
     Dates: start: 20161209
  27. HUMAN IMMUNOGLOBULIN; HYALURONIDASE [Suspect]
     Active Substance: HUMAN IMMUNOGLOBULIN G\HYALURONIDASE RECOMBINANT HUMAN
     Indication: IMMUNODEFICIENCY COMMON VARIABLE
     Dosage: 650 ML IG/ 32.5 ML RHUPH20, ONE DOSE
     Route: 058
     Dates: start: 20170505, end: 20170505
  28. HUMAN IMMUNOGLOBULIN; HYALURONIDASE [Suspect]
     Active Substance: HUMAN IMMUNOGLOBULIN G\HYALURONIDASE RECOMBINANT HUMAN
     Dosage: 650 DOSAGE FORM
     Route: 058
     Dates: start: 20170413, end: 20170413
  29. FORMOTEROL FUMARATE W/MOMETASONE FUROATE [Concomitant]
     Dosage: UNK DOSAGE FORM, QD
     Route: 048
     Dates: start: 2010, end: 201707
  30. PREDNISONE. [Concomitant]
     Active Substance: PREDNISONE
     Dosage: UNK MILLIGRAM, QD
     Dates: start: 20170424, end: 20170724
  31. HUMAN IMMUNOGLOBULIN; HYALURONIDASE [Suspect]
     Active Substance: HUMAN IMMUNOGLOBULIN G\HYALURONIDASE RECOMBINANT HUMAN
     Dosage: 600 UNK
     Route: 058
     Dates: start: 20170324, end: 20170324
  32. OLOPATADINE HCL [Concomitant]
     Active Substance: OLOPATADINE HYDROCHLORIDE
     Indication: SEASONAL ALLERGY
     Dosage: SPRAY,PRN
     Route: 045
     Dates: start: 20150331
  33. SERTRALINE HCL [Concomitant]
     Active Substance: SERTRALINE HYDROCHLORIDE
     Indication: ANXIETY DISORDER
     Dosage: UNK MILLIGRAM, QD
     Route: 048
     Dates: start: 2007
  34. LAMOTRIGINE. [Concomitant]
     Active Substance: LAMOTRIGINE
     Indication: AFFECTIVE DISORDER
     Dosage: UNK MILLIGRAM, QD
     Route: 048
     Dates: start: 2016
  35. PREDNISONE. [Concomitant]
     Active Substance: PREDNISONE
     Indication: BRONCHITIS
     Dosage: UNK MILLIGRAM, PRN
     Route: 048
     Dates: start: 20151218
  36. PROAIR HFA [Concomitant]
     Active Substance: ALBUTEROL SULFATE
     Indication: ASTHMA
     Dosage: UNK DOSAGE FORM, PRN
     Route: 055
     Dates: start: 20151218
  37. ZOLOFT [Concomitant]
     Active Substance: SERTRALINE HYDROCHLORIDE
     Indication: ANXIETY
     Dosage: 30 DOSAGE FORM, QD
     Route: 048
     Dates: start: 201704
  38. LEVALBUTEROL                       /01419301/ [Concomitant]
     Active Substance: LEVALBUTEROL
     Indication: ASTHMA
     Dosage: UNK MICROGRAM, BID
     Route: 055
     Dates: start: 20170425, end: 20170425
  39. TRAMADOL. [Concomitant]
     Active Substance: TRAMADOL
     Indication: LIGAMENT SPRAIN
     Dosage: 50 MILLIGRAM, Q8HR
     Route: 048

REACTIONS (1)
  - Electrocardiogram abnormal [Recovered/Resolved]

NARRATIVE: CASE EVENT DATE: 20170517
